FAERS Safety Report 4774866-X (Version None)
Quarter: 2005Q3

REPORT INFORMATION
  Report Type: 
  Country: None (occurrence: None)
  Receive Date: 20050919
  Receipt Date: 20050908
  Transmission Date: 20060218
  Serious: Yes (Death, Other)
  Sender: FDA-Public Use
  Company Number: 2005126815

PATIENT
  Age: 65 Year
  Sex: Male

DRUGS (1)
  1. LIPITOR [Suspect]
     Indication: ILL-DEFINED DISORDER
     Dosage: 10 MG

REACTIONS (3)
  - AORTIC ANEURYSM RUPTURE [None]
  - CEREBROVASCULAR ACCIDENT [None]
  - TREATMENT NONCOMPLIANCE [None]
